FAERS Safety Report 12892500 (Version 2)
Quarter: 2019Q4

REPORT INFORMATION
  Report Type: Report from Study
  Country: US (occurrence: US)
  Receive Date: 20161028
  Receipt Date: 20191113
  Transmission Date: 20200122
  Serious: Yes (Other)
  Sender: FDA-Public Use
  Company Number: US-ROCHE-1834971

PATIENT
  Age: 76 Year
  Sex: Female
  Weight: 71.5 kg

DRUGS (3)
  1. VEMURAFENIB. [Suspect]
     Active Substance: VEMURAFENIB
     Indication: COLORECTAL CANCER METASTATIC
     Dosage: MOST RECENT DOSE: 14/SEP/2016.
     Route: 048
     Dates: start: 20160607
  2. CETUXIMAB. [Suspect]
     Active Substance: CETUXIMAB
     Indication: COLORECTAL CANCER METASTATIC
     Dosage: LAST DOSE ON 02/SEP/2016, 946 MG
     Route: 065
     Dates: start: 20160607
  3. IRINOTECAN [Suspect]
     Active Substance: IRINOTECAN
     Indication: COLORECTAL CANCER METASTATIC
     Dosage: RECEIVED 340 MG ON 02/SEP/2016
     Route: 065
     Dates: start: 20160607, end: 20160902

REACTIONS (4)
  - Aspartate aminotransferase increased [Unknown]
  - Blood alkaline phosphatase increased [Unknown]
  - Bowen^s disease [Recovering/Resolving]
  - Second primary malignancy [Recovering/Resolving]

NARRATIVE: CASE EVENT DATE: 20160721
